FAERS Safety Report 5474809-X (Version None)
Quarter: 2007Q3

REPORT INFORMATION
  Report Type: 
  Country: None (occurrence: None)
  Receive Date: 20070927
  Receipt Date: 20070927
  Transmission Date: 20080115
  Serious: Yes (Death)
  Sender: FDA-Public Use
  Company Number: None

PATIENT
  Sex: Female
  Weight: 44 kg

DRUGS (10)
  1. ALEMTUZUMAB   30MG [Suspect]
     Indication: PERIPHERAL T-CELL LYMPHOMA UNSPECIFIED
     Dosage: 30MG  EVERY 3 WEEKS  IV DRIP
     Route: 041
     Dates: start: 20061229, end: 20070414
  2. ETOPOSIDE [Concomitant]
  3. ONCOVIN [Concomitant]
  4. HYDROXYLDAUNORUBICIN [Concomitant]
  5. CYCLOPHOSPHAMIDE [Concomitant]
  6. PREDNISONE [Concomitant]
  7. NEUPOGEN [Concomitant]
  8. PENTAMIDINE ISETHIONATE [Concomitant]
  9. ACYCLOVIR [Concomitant]
  10. FLUCONAZOLE [Concomitant]

REACTIONS (14)
  - BLOOD TRIGLYCERIDES INCREASED [None]
  - CHONDROCALCINOSIS PYROPHOSPHATE [None]
  - DIFFUSE ALVEOLAR DAMAGE [None]
  - ENCEPHALITIS [None]
  - FEBRILE NEUTROPENIA [None]
  - GENERAL PHYSICAL HEALTH DETERIORATION [None]
  - HISTIOCYTOSIS HAEMATOPHAGIC [None]
  - HYPOTENSION [None]
  - INTRA-ABDOMINAL HAEMORRHAGE [None]
  - MALAISE [None]
  - MYOCARDITIS [None]
  - THROMBOCYTOPENIA [None]
  - TOXOPLASMOSIS [None]
  - TRANSFERRIN INCREASED [None]
